FAERS Safety Report 5069983-3 (Version None)
Quarter: 2006Q3

REPORT INFORMATION
  Report Type: 
  Country: None (occurrence: None)
  Receive Date: 20060714
  Receipt Date: 20060404
  Transmission Date: 20061208
  Serious: No
  Sender: FDA-Public Use
  Company Number: 2006SP001515

PATIENT
  Age: 59 Year
  Sex: Male
  Weight: 98.8842 kg

DRUGS (9)
  1. LUNESTA [Suspect]
     Indication: INSOMNIA
     Dosage: 2 MG;1X;ORAL
     Route: 048
     Dates: start: 20060403, end: 20060403
  2. ATORVASTATIN CALCIUM [Concomitant]
  3. ATENOLOL [Concomitant]
  4. AMLODIPINE [Concomitant]
  5. ZYRTEC [Concomitant]
  6. LASIX [Concomitant]
  7. PEPCID [Concomitant]
  8. ASPIRIN [Concomitant]
  9. OTHER CHEMOTHERAPEUTICS [Concomitant]

REACTIONS (1)
  - INSOMNIA [None]
